FAERS Safety Report 10011782 (Version 1)
Quarter: 2014Q1

REPORT INFORMATION
  Report Type: Other
  Country: US (occurrence: US)
  Receive Date: 20140314
  Receipt Date: 20140314
  Transmission Date: 20141002
  Serious: Yes (Other)
  Sender: FDA-Public Use
  Company Number: US-BRISTOL-MYERS SQUIBB COMPANY-20514998

PATIENT
  Age: 75 Year
  Sex: 0

DRUGS (2)
  1. WARFARIN SODIUM [Suspect]
     Dosage: 1MG FOR 4 DAYS;2MG FOR 3 DAYS
  2. AMOXICILLIN [Interacting]
     Dosage: 500MG
     Route: 048

REACTIONS (2)
  - Post procedural haemorrhage [Recovered/Resolved]
  - Drug interaction [Unknown]
